FAERS Safety Report 12645852 (Version 2)
Quarter: 2016Q3

REPORT INFORMATION
  Report Type: Spontaneous
  Country: US (occurrence: US)
  Receive Date: 20160811
  Receipt Date: 20160811
  Transmission Date: 20161109
  Serious: No
  Sender: FDA-Public Use
  Company Number: US-ENDO PHARMACEUTICALS INC.-2016-001181

PATIENT
  Age: 75 Year
  Sex: Male

DRUGS (2)
  1. PREDNISONE TABLETS [Suspect]
     Active Substance: PREDNISONE
     Indication: PRODUCT USED FOR UNKNOWN INDICATION
     Route: 065
  2. XTANDI [Suspect]
     Active Substance: ENZALUTAMIDE
     Indication: PROSTATE CANCER
     Route: 065

REACTIONS (5)
  - Nausea [Recovered/Resolved]
  - Nausea [Unknown]
  - Abdominal distension [Unknown]
  - Dysgeusia [Unknown]
  - Decreased appetite [Unknown]

NARRATIVE: CASE EVENT DATE: 201512
